FAERS Safety Report 11516329 (Version 2)
Quarter: 2015Q3

REPORT INFORMATION
  Report Type: Spontaneous
  Country: GB (occurrence: None)
  Receive Date: 20150915
  Receipt Date: 20150929
  Transmission Date: 20151125
  Serious: Yes (Disabling)
  Sender: FDA-Public Use
  Company Number: 2015GR_BP005610

PATIENT
  Age: 30 Year
  Sex: Male

DRUGS (3)
  1. LOSARTAN. [Concomitant]
     Active Substance: LOSARTAN
  2. FINASTERIDE. [Suspect]
     Active Substance: FINASTERIDE
     Indication: ANDROGENETIC ALOPECIA
     Route: 048
     Dates: start: 20150608
  3. FINASTERIDE. [Suspect]
     Active Substance: FINASTERIDE
     Indication: OFF LABEL USE
     Route: 048
     Dates: start: 20150608

REACTIONS (4)
  - Abdominal discomfort [None]
  - Off label use [None]
  - Abdominal pain upper [None]
  - Drug dependence [None]

NARRATIVE: CASE EVENT DATE: 20150608
